FAERS Safety Report 13947386 (Version 2)
Quarter: 2017Q4

REPORT INFORMATION
  Report Type: Spontaneous
  Country: US (occurrence: US)
  Receive Date: 20170908
  Receipt Date: 20171017
  Transmission Date: 20180320
  Serious: No
  Sender: FDA-Public Use
  Company Number: US-TEVA-803429ACC

PATIENT
  Sex: Female

DRUGS (16)
  1. NEURONTIN [Concomitant]
     Active Substance: GABAPENTIN
  2. ATIVAN [Concomitant]
     Active Substance: LORAZEPAM
  3. XANAX [Concomitant]
     Active Substance: ALPRAZOLAM
  4. MELOXICAM. [Concomitant]
     Active Substance: MELOXICAM
  5. MULTIVITAMIN [Concomitant]
     Active Substance: VITAMINS
  6. NORTRIPTYLINE [Concomitant]
     Active Substance: NORTRIPTYLINE
  7. CORGARD [Concomitant]
     Active Substance: NADOLOL
  8. CLARITIN [Concomitant]
     Active Substance: LORATADINE
  9. HYDROCHLOROTHIAZIDE. [Concomitant]
     Active Substance: HYDROCHLOROTHIAZIDE
  10. INDOCIN [Concomitant]
     Active Substance: INDOMETHACIN
  11. METAXALONE. [Concomitant]
     Active Substance: METAXALONE
  12. VITAMIN D3 [Concomitant]
     Active Substance: CHOLECALCIFEROL
  13. COPAXONE [Suspect]
     Active Substance: GLATIRAMER ACETATE
     Indication: MULTIPLE SCLEROSIS
     Route: 058
     Dates: start: 20160210
  14. TYLENOL [Concomitant]
     Active Substance: ACETAMINOPHEN
  15. CAMRESE [Concomitant]
     Active Substance: ETHINYL ESTRADIOL\LEVONORGESTREL
  16. METHOCARBAMOL. [Concomitant]
     Active Substance: METHOCARBAMOL

REACTIONS (4)
  - Influenza like illness [Not Recovered/Not Resolved]
  - Injection site swelling [Not Recovered/Not Resolved]
  - Injection site erythema [Not Recovered/Not Resolved]
  - Injection site reaction [Not Recovered/Not Resolved]
